FAERS Safety Report 5584687-6 (Version None)
Quarter: 2008Q1

REPORT INFORMATION
  Report Type: 
  Country: None (occurrence: None)
  Receive Date: 20080103
  Receipt Date: 20071218
  Transmission Date: 20080703
  Serious: Yes (Other)
  Sender: FDA-Public Use
  Company Number: 2007EU002666

PATIENT
  Age: 13 Year
  Sex: Female

DRUGS (1)
  1. PROTOPIC [Suspect]
     Indication: DERMATITIS ATOPIC
     Dosage: 1%, /D, TOPICAL
     Route: 061

REACTIONS (3)
  - APPLICATION SITE REACTION [None]
  - LENTIGO [None]
  - MALIGNANT MELANOMA [None]
